FAERS Safety Report 8349205 (Version 4)
Quarter: 2013Q3

REPORT INFORMATION
  Report Type: Report from Study
  Country: US (occurrence: US)
  Receive Date: 20120123
  Receipt Date: 20130814
  Transmission Date: 20140515
  Serious: Yes (Hospitalization)
  Sender: FDA-Public Use
  Company Number: US-UCBSA-046777

PATIENT
  Age: 32 Year
  Sex: Female
  Weight: 62.6 kg

DRUGS (21)
  1. CIMZIA [Suspect]
     Indication: CROHN^S DISEASE
     Route: 058
     Dates: start: 20110508, end: 2011
  2. BACLOFEN [Concomitant]
  3. HYDROCORTISONE [Concomitant]
  4. MESALAMINE [Concomitant]
     Indication: CROHN^S DISEASE
     Dates: start: 20110702
  5. FLAGYL [Concomitant]
     Indication: CROHN^S DISEASE
     Dates: start: 20110608
  6. LIBRIUM [Concomitant]
     Dates: start: 20111001
  7. PERCOCET [Concomitant]
  8. OXYIR [Concomitant]
  9. SEVELLA [Concomitant]
     Dosage: 1 TABLET TWICE DAILY
  10. XOPENEX [Concomitant]
  11. DURAGESIC [Concomitant]
     Dosage: 25 MCG EVERY 72 HOURS
     Route: 062
  12. FOLATE [Concomitant]
     Dosage: TOTAL DAILY DOSE: 1 MG
  13. ATIVAN [Concomitant]
  14. LOPRESSOR [Concomitant]
     Dosage: 25 MG, HALF TABLET, TWICE DAILY
  15. PROTONIX [Concomitant]
     Dosage: 40 MG
  16. CARAFATE [Concomitant]
     Dosage: 10 MG/ML 10 ML AT BEFORE MEALS (A.C) AND AT BEDTIME (H.C)
  17. COUMADIN [Concomitant]
  18. FENTANYL PATCH [Concomitant]
     Dosage: 25MCG EVERY 72 HOURS
  19. K-TAB [Concomitant]
  20. VALTREX [Concomitant]
     Dosage: TOTAL DAILY DOSE: 1 G
  21. ZOFRAN [Concomitant]
     Dosage: 4 MG, TWICE DAILY AS NEEDED
     Route: 048

REACTIONS (1)
  - Crohn^s disease [Recovered/Resolved]
